FAERS Safety Report 7075806-3 (Version None)
Quarter: 2010Q4

REPORT INFORMATION
  Report Type: 
  Country: None (occurrence: None)
  Receive Date: 20101101
  Receipt Date: 20101019
  Transmission Date: 20110411
  Serious: No
  Sender: FDA-Public Use
  Company Number: US-BIOGENIDEC-2010BI020703

PATIENT
  Age: 45 Year
  Sex: Female

DRUGS (2)
  1. TYSABRI [Suspect]
     Indication: MULTIPLE SCLEROSIS
     Route: 042
     Dates: start: 20100505
  2. AMPYRA [Concomitant]
     Indication: PROPHYLAXIS
     Dates: start: 20100801

REACTIONS (3)
  - ASTHENIA [None]
  - HYPOAESTHESIA [None]
  - MOBILITY DECREASED [None]
